FAERS Safety Report 10827608 (Version 1)
Quarter: 2015Q1

REPORT INFORMATION
  Report Type: Report from Study
  Country: US (occurrence: US)
  Receive Date: 20150219
  Receipt Date: 20150219
  Transmission Date: 20150721
  Serious: No
  Sender: FDA-Public Use
  Company Number: US-ABBVIE-14K-163-1325115-00

PATIENT
  Age: 54 Year
  Sex: Female

DRUGS (2)
  1. BUDESONIDE. [Concomitant]
     Active Substance: BUDESONIDE
     Indication: PRODUCT USED FOR UNKNOWN INDICATION
     Route: 048
  2. HUMIRA [Suspect]
     Active Substance: ADALIMUMAB
     Indication: CROHN^S DISEASE
     Route: 065
     Dates: start: 201403

REACTIONS (5)
  - Headache [Recovering/Resolving]
  - Rash [Not Recovered/Not Resolved]
  - Pneumonia [Unknown]
  - Decreased appetite [Unknown]
  - Chromatopsia [Recovering/Resolving]

NARRATIVE: CASE EVENT DATE: 20141118
